FAERS Safety Report 9021926 (Version 2)
Quarter: 2013Q4

REPORT INFORMATION
  Report Type: Spontaneous
  Country: US (occurrence: US)
  Receive Date: 20130118
  Receipt Date: 20131020
  Transmission Date: 20140711
  Serious: Yes (Other)
  Sender: FDA-Public Use
  Company Number: US-JNJFOC-20130106904

PATIENT
  Age: 53 Year
  Sex: Female

DRUGS (1)
  1. NICOTINE POLACRILEX GUM 4 MG ORIGINAL [Suspect]
     Indication: NICOTINE DEPENDENCE
     Route: 048

REACTIONS (5)
  - Intentional drug misuse [Not Recovered/Not Resolved]
  - Nicotine dependence [Not Recovered/Not Resolved]
  - Drug administration error [Unknown]
  - Product quality issue [Unknown]
  - Hiccups [Unknown]
